FAERS Safety Report 4610805-X (Version None)
Quarter: 2005Q2

REPORT INFORMATION
  Report Type: 
  Country: None (occurrence: None)
  Receive Date: 20050223
  Receipt Date: 20040312
  Transmission Date: 20051028
  Serious: Yes (Disabling)
  Sender: FDA-Public Use
  Company Number: WAES 0403USA01293

PATIENT
  Age: 60 Year
  Sex: Female

DRUGS (3)
  1. ZOCOR [Suspect]
     Indication: BLOOD CHOLESTEROL INCREASED
     Dosage: 10 MG/DAILY/PO
     Route: 048
     Dates: start: 20020101, end: 20040220
  2. AVANDIA [Concomitant]
  3. GLUCOPHAGE [Concomitant]

REACTIONS (1)
  - ARTHRITIS [None]
